FAERS Safety Report 7119518-6 (Version None)
Quarter: 2010Q4

REPORT INFORMATION
  Report Type: 
  Country: None (occurrence: None)
  Receive Date: 20101123
  Receipt Date: 20101116
  Transmission Date: 20110411
  Serious: Yes (Death, Other)
  Sender: FDA-Public Use
  Company Number: US-AMGEN-USASP2010005365

PATIENT

DRUGS (3)
  1. NPLATE [Suspect]
     Indication: IDIOPATHIC THROMBOCYTOPENIC PURPURA
     Dosage: 6 A?G/KG, UNK
     Dates: start: 20091204, end: 20100610
  2. IMMU-G [Concomitant]
     Indication: IDIOPATHIC THROMBOCYTOPENIC PURPURA
  3. RITUXIMAB [Concomitant]
     Indication: IDIOPATHIC THROMBOCYTOPENIC PURPURA

REACTIONS (2)
  - LYMPHOMA [None]
  - THERAPEUTIC RESPONSE DECREASED [None]
